FAERS Safety Report 12976152 (Version 2)
Quarter: 2017Q1

REPORT INFORMATION
  Report Type: Spontaneous
  Country: FR (occurrence: FR)
  Receive Date: 20161126
  Receipt Date: 20170213
  Transmission Date: 20170428
  Serious: Yes (Death, Hospitalization, Other)
  Sender: FDA-Public Use
  Company Number: FR-B.I. PHARMACEUTICALS,INC./RIDGEFIELD-2016-BI-079987

PATIENT
  Age: 83 Year
  Sex: Male

DRUGS (5)
  1. JOSIR [Suspect]
     Active Substance: TAMSULOSIN
     Indication: PROSTATE CANCER
     Route: 065
     Dates: start: 201401
  2. PRADAXA [Concomitant]
     Active Substance: DABIGATRAN ETEXILATE MESYLATE
     Indication: PRODUCT USED FOR UNKNOWN INDICATION
     Route: 065
  3. ELIGARD [Suspect]
     Active Substance: LEUPROLIDE ACETATE
     Indication: PROSTATE CANCER
     Route: 058
     Dates: start: 20160705
  4. AVODART [Concomitant]
     Active Substance: DUTASTERIDE
     Indication: PRODUCT USED FOR UNKNOWN INDICATION
     Route: 065
     Dates: start: 2014
  5. CASODEX [Concomitant]
     Active Substance: BICALUTAMIDE
     Indication: PRODUCT USED FOR UNKNOWN INDICATION
     Route: 065
     Dates: start: 20160622

REACTIONS (11)
  - Lymphadenopathy [Unknown]
  - Prostatic specific antigen increased [Recovering/Resolving]
  - Cerebrovascular accident [Fatal]
  - Haematuria [Unknown]
  - Prostate cancer [Fatal]
  - Oedema peripheral [Unknown]
  - Localised oedema [Unknown]
  - Blood testosterone increased [Recovering/Resolving]
  - Hemiplegia [Fatal]
  - Off label use [Unknown]
  - Retroperitoneal lymphadenopathy [Unknown]

NARRATIVE: CASE EVENT DATE: 201401
